FAERS Safety Report 18821415 (Version 1)
Quarter: 2021Q1

REPORT INFORMATION
  Report Type: Report from Study
  Country: US (occurrence: US)
  Receive Date: 20210202
  Receipt Date: 20210202
  Transmission Date: 20210419
  Serious: Yes (Other)
  Sender: FDA-Public Use
  Company Number: US-BAYER-2021-044480

PATIENT

DRUGS (1)
  1. ASPIRIN 162MG [Suspect]
     Active Substance: ASPIRIN

REACTIONS (1)
  - Gastrointestinal haemorrhage [Unknown]
